FAERS Safety Report 11995761 (Version 2)
Quarter: 2016Q1

REPORT INFORMATION
  Report Type: Report from Study
  Country: JP (occurrence: JP)
  Receive Date: 20160203
  Receipt Date: 20160302
  Transmission Date: 20160526
  Serious: Yes (Death, Other)
  Sender: FDA-Public Use
  Company Number: JP-INCYTE CORPORATION-2015IN003463

PATIENT
  Age: 54 Year
  Sex: Female
  Weight: 44 kg

DRUGS (9)
  1. JAKAFI [Suspect]
     Active Substance: RUXOLITINIB
     Indication: PRIMARY MYELOFIBROSIS
     Dosage: 5 MG, BID
     Route: 048
     Dates: start: 20141016, end: 20141114
  2. PREDNISOLONE. [Concomitant]
     Active Substance: PREDNISOLONE
     Dosage: 5 MG, UNK
     Route: 048
  3. HYDREA [Suspect]
     Active Substance: HYDROXYUREA
     Indication: MYELOFIBROSIS
     Dosage: 500 MG, QD (DAILY)
     Route: 048
  4. HYDREA [Suspect]
     Active Substance: HYDROXYUREA
     Dosage: 500 MG, QD
  5. PREDNISOLONE. [Concomitant]
     Active Substance: PREDNISOLONE
     Indication: MYELOFIBROSIS
     Dosage: UNK
     Route: 048
  6. PREDNISOLONE. [Concomitant]
     Active Substance: PREDNISOLONE
     Dosage: 5 MG, UNK
     Route: 048
  7. PREDNISOLONE. [Concomitant]
     Active Substance: PREDNISOLONE
     Dosage: 5 MG, UNK
     Route: 048
  8. PREDNISOLONE. [Concomitant]
     Active Substance: PREDNISOLONE
     Dosage: 5 MG, UNK
     Route: 048
  9. JAKAFI [Suspect]
     Active Substance: RUXOLITINIB
     Dosage: 10 MG, BID
     Route: 048
     Dates: start: 20141115, end: 20141205

REACTIONS (7)
  - Primary myelofibrosis [Fatal]
  - Anaemia [Not Recovered/Not Resolved]
  - Blood pressure decreased [Unknown]
  - Platelet count decreased [Recovering/Resolving]
  - Blood alkaline phosphatase increased [Recovered/Resolved]
  - Haematocrit decreased [Unknown]
  - Weight increased [Unknown]

NARRATIVE: CASE EVENT DATE: 20141017
